FAERS Safety Report 8574381-1 (Version None)
Quarter: 2012Q3

REPORT INFORMATION
  Report Type: 
  Country: None (occurrence: None)
  Receive Date: 20120806
  Receipt Date: 20120725
  Transmission Date: 20120928
  Serious: Yes (Hospitalization)
  Sender: FDA-Public Use
  Company Number: IL-ELI_LILLY_AND_COMPANY-IL201207008818

PATIENT
  Sex: Male
  Weight: 130 kg

DRUGS (6)
  1. APIDRA [Concomitant]
  2. GLUCOPHAGE [Concomitant]
  3. TRAMADEX [Concomitant]
  4. BYETTA [Suspect]
     Indication: DIABETES MELLITUS
     Dosage: 10 UG, BID
     Route: 058
     Dates: start: 20110707
  5. PERPHENAN [Concomitant]
  6. LANTUS [Concomitant]

REACTIONS (2)
  - LOCALISED INFECTION [None]
  - WOUND NECROSIS [None]
